FAERS Safety Report 8136787-4 (Version None)
Quarter: 2012Q1

REPORT INFORMATION
  Report Type: 
  Country: None (occurrence: None)
  Receive Date: 20120214
  Receipt Date: 20120213
  Transmission Date: 20120608
  Serious: Yes (Other)
  Sender: FDA-Public Use
  Company Number: US-PFIZER INC-2012038871

PATIENT
  Sex: Female
  Weight: 91.61 kg

DRUGS (3)
  1. LIPITOR [Suspect]
     Indication: BLOOD TRIGLYCERIDES INCREASED
  2. LIPITOR [Suspect]
     Indication: ARTERIAL DISORDER
     Dosage: 20 MG, DAILY
     Dates: start: 19980101
  3. ROXICODONE [Concomitant]
     Indication: PAIN
     Dosage: 30 MG, AS NEEDED

REACTIONS (1)
  - HYPERTENSION [None]
